FAERS Safety Report 20102298 (Version 2)
Quarter: 2022Q1

REPORT INFORMATION
  Report Type: Spontaneous
  Country: US (occurrence: US)
  Receive Date: 20211123
  Receipt Date: 20220215
  Transmission Date: 20220424
  Serious: No
  Sender: FDA-Public Use
  Company Number: US-PFIZER INC-2021700548

PATIENT
  Age: 69 Year
  Sex: Female

DRUGS (3)
  1. IBRANCE [Suspect]
     Active Substance: PALBOCICLIB
     Indication: Breast cancer female
     Dosage: 100 MG, CYCLIC (QD DAYS 1-21 OF 28 DAY CYCLE)
     Route: 048
     Dates: start: 20210402
  2. IBRANCE [Suspect]
     Active Substance: PALBOCICLIB
     Dosage: 100 MG, DAILY
  3. IBRANCE [Suspect]
     Active Substance: PALBOCICLIB
     Dosage: 100 MG
     Dates: start: 20210611

REACTIONS (5)
  - Rash [Unknown]
  - Alopecia [Unknown]
  - Dry skin [Unknown]
  - Pruritus [Unknown]
  - Mouth ulceration [Unknown]

NARRATIVE: CASE EVENT DATE: 20210801
